FAERS Safety Report 21998835 (Version 1)
Quarter: 2023Q1

REPORT INFORMATION
  Report Type: Spontaneous
  Country: GB (occurrence: GB)
  Receive Date: 20230216
  Receipt Date: 20230216
  Transmission Date: 20230417
  Serious: Yes (Other)
  Sender: FDA-Public Use
  Company Number: GB-BRISTOL-MYERS SQUIBB COMPANY-BMS-2020-051341

PATIENT
  Age: 27 Year
  Sex: Male

DRUGS (8)
  1. BETAFERON [Suspect]
     Active Substance: INTERFERON BETA-1B
     Indication: Chronic myeloid leukaemia
     Route: 065
     Dates: start: 20190513, end: 20200304
  2. BOSUTINIB [Suspect]
     Active Substance: BOSUTINIB
     Indication: Chronic myeloid leukaemia
     Route: 065
     Dates: start: 20190409, end: 20190425
  3. DASATINIB [Suspect]
     Active Substance: DASATINIB
     Indication: Chronic myeloid leukaemia
     Route: 065
     Dates: start: 20190311, end: 20190313
  4. IMATINIB [Suspect]
     Active Substance: IMATINIB
     Indication: Muscle spasms
     Route: 065
     Dates: start: 20181112, end: 20190225
  5. IMATINIB [Suspect]
     Active Substance: IMATINIB
     Indication: Chronic myeloid leukaemia
  6. IMATINIB [Suspect]
     Active Substance: IMATINIB
     Indication: Myalgia
  7. NILOTINIB [Suspect]
     Active Substance: NILOTINIB
     Indication: Chronic myeloid leukaemia
     Route: 065
     Dates: start: 20200311, end: 20200515
  8. PONATINIB [Suspect]
     Active Substance: PONATINIB
     Indication: Chronic myeloid leukaemia
     Route: 065
     Dates: start: 20200603, end: 20200617

REACTIONS (3)
  - Drug intolerance [Unknown]
  - Muscle disorder [Unknown]
  - Myopathy toxic [Unknown]
